FAERS Safety Report 13372871 (Version 1)
Quarter: 2017Q1

REPORT INFORMATION
  Report Type: Report from Study
  Country: AR (occurrence: AR)
  Receive Date: 20170327
  Receipt Date: 20170327
  Transmission Date: 20170429
  Serious: Yes (Death, Hospitalization)
  Sender: FDA-Public Use
  Company Number: AR-ORION CORPORATION ORION PHARMA-ENTC2017-0127

PATIENT
  Age: 76 Year
  Sex: Female

DRUGS (4)
  1. STALEVO [Suspect]
     Active Substance: CARBIDOPA\ENTACAPONE\LEVODOPA
     Dosage: STRENGTH: 100 MG, (1 IN THE MORNING, 1 IN THE AFTERNOON AND 1 AT NIGHT)
     Route: 065
  2. CLONAZEPAM. [Concomitant]
     Active Substance: CLONAZEPAM
     Indication: INSOMNIA
     Route: 065
  3. PARACETAMOL [Concomitant]
     Active Substance: ACETAMINOPHEN
     Route: 065
  4. STALEVO [Suspect]
     Active Substance: CARBIDOPA\ENTACAPONE\LEVODOPA
     Indication: PARKINSON^S DISEASE
     Dosage: STRENGTH: 100 MG
     Route: 065

REACTIONS (9)
  - Drug dose omission [Unknown]
  - Decreased appetite [Unknown]
  - Acute respiratory failure [Fatal]
  - Fall [Unknown]
  - Scratch [Unknown]
  - Fluid intake reduced [Unknown]
  - Somnolence [Unknown]
  - Pneumonia [Unknown]
  - Listless [Unknown]

NARRATIVE: CASE EVENT DATE: 20161001
